FAERS Safety Report 17668705 (Version 1)
Quarter: 2020Q2

REPORT INFORMATION
  Report Type: Spontaneous
  Country: ES (occurrence: ES)
  Receive Date: 20200415
  Receipt Date: 20200415
  Transmission Date: 20200713
  Serious: Yes (Hospitalization)
  Sender: FDA-Public Use
  Company Number: ES-AUROBINDO-AUR-APL-2020-017736

PATIENT
  Age: 69 Year
  Sex: Female
  Weight: 57 kg

DRUGS (3)
  1. EPLERENONE. [Interacting]
     Active Substance: EPLERENONE
     Indication: VENTRICULAR DYSFUNCTION
     Dosage: 50 MILLIGRAM, ONCE A DAY
     Route: 048
     Dates: start: 20200203, end: 20200227
  2. FUROSEMIDE. [Suspect]
     Active Substance: FUROSEMIDE
     Indication: VENTRICULAR DYSFUNCTION
     Dosage: UNK
     Route: 048
     Dates: start: 20200203
  3. ENALAPRIL [Interacting]
     Active Substance: ENALAPRIL
     Indication: VENTRICULAR DYSFUNCTION
     Dosage: 5 MILLIGRAM, TWO TIMES A DAY
     Route: 048
     Dates: start: 20200203, end: 20200227

REACTIONS (1)
  - Hyponatraemia [Recovered/Resolved]

NARRATIVE: CASE EVENT DATE: 20200227
